FAERS Safety Report 20966563 (Version 1)
Quarter: 2022Q2

REPORT INFORMATION
  Report Type: Spontaneous
  Country: US (occurrence: None)
  Receive Date: 20220615
  Receipt Date: 20220615
  Transmission Date: 20220721
  Serious: Yes (Life-Threatening, Hospitalization)
  Sender: FDA-Public Use
  Company Number: None

PATIENT
  Age: 73 Year
  Sex: Male

DRUGS (7)
  1. LUMASON [Suspect]
     Active Substance: SULFUR HEXAFLUORIDE
     Indication: Echocardiogram
     Dosage: OTHER FREQUENCY : 1X;?
     Route: 040
     Dates: start: 20220613, end: 20220613
  2. CARVEDILOL [Concomitant]
     Active Substance: CARVEDILOL
     Dates: start: 20220424
  3. CLOPIDOGREL [Concomitant]
     Active Substance: CLOPIDOGREL BISULFATE
     Dates: start: 20220424
  4. LISINOPRIL [Concomitant]
     Active Substance: LISINOPRIL
     Dates: start: 20220424
  5. NITROGLYCERIN [Concomitant]
     Active Substance: NITROGLYCERIN
     Dates: start: 20220424
  6. ROSUVASTATIN [Concomitant]
     Active Substance: ROSUVASTATIN
     Dates: start: 20220424
  7. ASPIRIN [Concomitant]
     Active Substance: ASPIRIN
     Dates: start: 20220424

REACTIONS (5)
  - Dyspnoea [None]
  - Hypotension [None]
  - Heart rate increased [None]
  - Wheezing [None]
  - Anaphylactic shock [None]

NARRATIVE: CASE EVENT DATE: 20220613
